FAERS Safety Report 4378444-6 (Version None)
Quarter: 2004Q2

REPORT INFORMATION
  Report Type: 
  Country: None (occurrence: None)
  Receive Date: 20040609
  Receipt Date: 20040531
  Transmission Date: 20050107
  Serious: Yes (Other)
  Sender: FDA-Public Use
  Company Number: 2004-05-0013

PATIENT
  Age: 48 Year
  Sex: Male
  Weight: 86.1834 kg

DRUGS (4)
  1. PEG-INTERFERON ALFA-2B [Suspect]
     Indication: HEPATITIS C
     Dosage: 150 MCG QWK SUBCUTANEOUS
     Route: 058
     Dates: start: 20031001
  2. RIBAVIRIN [Suspect]
     Indication: HEPATITIS C
     Dosage: 1200 MG QD ORAL
     Route: 048
     Dates: start: 20031001
  3. GRAVOL TABLETS [Concomitant]
  4. ADVIL [Concomitant]

REACTIONS (2)
  - ALOPECIA [None]
  - PULMONARY EMBOLISM [None]
